FAERS Safety Report 10296792 (Version 2)
Quarter: 2014Q3

REPORT INFORMATION
  Report Type: Report from Study
  Country: BE (occurrence: BE)
  Receive Date: 20140710
  Receipt Date: 20140710
  Transmission Date: 20150326
  Serious: Yes (Hospitalization, Other)
  Sender: FDA-Public Use
  Company Number: BE-ABBVIE-13P-013-1083813-00

PATIENT
  Sex: Female

DRUGS (9)
  1. DUODOPA [Suspect]
     Active Substance: CARBIDOPA\LEVODOPA
     Dosage: AM DOSE= 6.5, CONTIN DOSE= 3.2ML/H DURING 16HRS, EXTRA DOSE =1ML
     Route: 050
     Dates: start: 20120905, end: 20120913
  2. DUODOPA [Suspect]
     Active Substance: CARBIDOPA\LEVODOPA
     Dosage: AM DOSE: 4ML, CONTIN DOSE: 2.8ML/H DURING 16HRS; EXTRA DOSE: 1ML
     Route: 050
     Dates: start: 20121030, end: 20131218
  3. DUODOPA [Suspect]
     Active Substance: CARBIDOPA\LEVODOPA
     Indication: PARKINSON^S DISEASE
     Dosage: UNKNOWN
     Route: 050
     Dates: start: 20080328, end: 20080702
  4. DUODOPA [Suspect]
     Active Substance: CARBIDOPA\LEVODOPA
     Dosage: DOSAGE CONTINUOUSLY MONITORED AND ADJUSTED
     Route: 050
     Dates: start: 20100906, end: 20110804
  5. DUODOPA [Suspect]
     Active Substance: CARBIDOPA\LEVODOPA
     Dosage: AM DOSE= 4ML, CONTIN DOSE= 3.3ML/H DURING 16HRS, EXTRA DOSE= 1ML
     Route: 050
     Dates: start: 20120913, end: 20121030
  6. DUODOPA [Suspect]
     Active Substance: CARBIDOPA\LEVODOPA
     Dosage: AM DOSE= 3.5ML, CONTIN DOSE= 3.2ML/H DURING 16HRS, EXTRA DOSE= 1ML
     Route: 050
     Dates: start: 20080702, end: 20100906
  7. DUODOPA [Suspect]
     Active Substance: CARBIDOPA\LEVODOPA
     Dosage: AM DOSE= 6.5ML, CONTIN DOSE= 3.7ML/H DURING 16HRS, EXTRA DOSE= 1ML
     Route: 050
     Dates: start: 20110804, end: 20120905
  8. DUROGESIC [Concomitant]
     Active Substance: FENTANYL
     Indication: PRODUCT USED FOR UNKNOWN INDICATION
     Dates: start: 201209
  9. DUODOPA [Suspect]
     Active Substance: CARBIDOPA\LEVODOPA
     Dosage: AM DOSE: 4ML, CONTIN DOSE: 3.1ML/H DURING 16HRS; EXTRA DOSE: 1ML
     Route: 050
     Dates: start: 20131218

REACTIONS (13)
  - Somnolence [Unknown]
  - Cognitive disorder [Unknown]
  - General physical health deterioration [Unknown]
  - Stoma site irritation [Recovered/Resolved]
  - Personality disorder [Not Recovered/Not Resolved]
  - Dehydration [Unknown]
  - Loss of consciousness [Unknown]
  - Incontinence [Unknown]
  - Aphasia [Not Recovered/Not Resolved]
  - Pyrexia [Unknown]
  - Dysphagia [Not Recovered/Not Resolved]
  - Cough [Unknown]
  - Dyskinesia [Unknown]
